FAERS Safety Report 5692886-8 (Version None)
Quarter: 2008Q2

REPORT INFORMATION
  Report Type: 
  Country: None (occurrence: None)
  Receive Date: 20080326
  Receipt Date: 20080115
  Transmission Date: 20081010
  Serious: No
  Sender: FDA-Public Use
  Company Number: US-CVT-080006

PATIENT
  Age: 48 Year
  Sex: Female

DRUGS (2)
  1. RANEXA [Suspect]
     Indication: MICROVASCULAR ANGINA
     Dosage: 1000 MG, BID, ORAL
     Route: 048
  2. PREDNISONE [Suspect]
     Indication: SYSTEMIC LUPUS ERYTHEMATOSUS

REACTIONS (1)
  - OESOPHAGEAL CANDIDIASIS [None]
